FAERS Safety Report 7812652-4 (Version None)
Quarter: 2011Q4

REPORT INFORMATION
  Report Type: 
  Country: None (occurrence: None)
  Receive Date: 20111011
  Receipt Date: 20110923
  Transmission Date: 20120403
  Serious: Yes (Life-Threatening)
  Sender: FDA-Public Use
  Company Number: 1000020200

PATIENT
  Age: 32 Year
  Sex: Female
  Weight: 52.16 kg

DRUGS (2)
  1. CELEXA [Suspect]
     Indication: DEPRESSION
     Dosage: 10 MG (10 MG,1 IN 1 D),ORAL,  20 MG (20 MG, 1  IN 1 D), ORAL
     Route: 048
     Dates: start: 20101126, end: 20101203
  2. CELEXA [Suspect]
     Indication: DEPRESSION
     Dosage: 10 MG (10 MG,1 IN 1 D),ORAL,  20 MG (20 MG, 1  IN 1 D), ORAL
     Route: 048
     Dates: start: 20101204

REACTIONS (3)
  - SUICIDAL IDEATION [None]
  - PSYCHOTIC DISORDER [None]
  - FEELING ABNORMAL [None]
